FAERS Safety Report 5910705-9 (Version None)
Quarter: 2008Q4

REPORT INFORMATION
  Report Type: 
  Country: None (occurrence: None)
  Receive Date: 20081006
  Receipt Date: 20081006
  Transmission Date: 20090506
  Serious: Yes (Hospitalization)
  Sender: FDA-Public Use
  Company Number: None

PATIENT
  Age: 75 Year
  Sex: Female

DRUGS (3)
  1. AMIODARONE HCL [Suspect]
     Dosage: 200 MG DAILY PO, 2-3 YEARS
     Route: 048
  2. LISINOPRIL [Concomitant]
  3. LASIX [Concomitant]

REACTIONS (3)
  - CHEST X-RAY ABNORMAL [None]
  - HYPOTHYROIDISM [None]
  - URINARY TRACT INFECTION [None]
